FAERS Safety Report 6830790 (Version 6)
Quarter: 2013Q3

REPORT INFORMATION
  Report Type: Spontaneous
  Country: US (occurrence: US)
  Receive Date: 20080122
  Receipt Date: 20130925
  Transmission Date: 20140515
  Serious: Yes (Hospitalization)
  Sender: FDA-Public Use
  Company Number: US-BIOGENIDEC-2008BI001064

PATIENT
  Age: 52 Year
  Sex: Female
  Weight: 59 kg

DRUGS (3)
  1. AVONEX [Suspect]
     Indication: MULTIPLE SCLEROSIS
     Route: 030
     Dates: start: 20030621, end: 20090108
  2. AVONEX [Suspect]
     Indication: MULTIPLE SCLEROSIS
     Route: 030
     Dates: start: 201212
  3. AMPYRA [Concomitant]
     Indication: GAIT DISTURBANCE
     Dates: start: 201305

REACTIONS (17)
  - Ischaemic stroke [Recovered/Resolved]
  - Adverse drug reaction [Recovered/Resolved]
  - Cerebrovascular accident [Recovered/Resolved]
  - Abdominal discomfort [Recovered/Resolved]
  - Pain [Unknown]
  - Gait disturbance [Unknown]
  - Memory impairment [Not Recovered/Not Resolved]
  - Musculoskeletal disorder [Unknown]
  - Hypoaesthesia [Unknown]
  - Urinary incontinence [Unknown]
  - Back pain [Unknown]
  - Intervertebral disc degeneration [Unknown]
  - Skin lesion [Unknown]
  - Depression [Unknown]
  - Muscle spasms [Recovered/Resolved]
  - Arthritis [Not Recovered/Not Resolved]
  - Neck pain [Unknown]
